FAERS Safety Report 9604781 (Version 5)
Quarter: 2014Q3

REPORT INFORMATION
  Report Type: Spontaneous
  Country: US (occurrence: US)
  Receive Date: 20131008
  Receipt Date: 20140710
  Transmission Date: 20150326
  Serious: Yes (Hospitalization, Other)
  Sender: FDA-Public Use
  Company Number: US-009507513-1310USA003043

PATIENT
  Sex: Female
  Weight: 108.84 kg

DRUGS (2)
  1. NUVARING [Suspect]
     Active Substance: ETHINYL ESTRADIOL\ETONOGESTREL
     Indication: CONTRACEPTION
     Dosage: UNK
     Route: 067
     Dates: start: 2009
  2. NUVARING [Suspect]
     Active Substance: ETHINYL ESTRADIOL\ETONOGESTREL
     Dosage: UNK
     Route: 067
     Dates: start: 20130126, end: 201306

REACTIONS (17)
  - Pulmonary mass [Unknown]
  - Deep vein thrombosis [Unknown]
  - Sleep apnoea syndrome [Not Recovered/Not Resolved]
  - Anxiety [Not Recovered/Not Resolved]
  - Asthma [Unknown]
  - Bipolar disorder [Not Recovered/Not Resolved]
  - Pulmonary embolism [Recovered/Resolved]
  - Chest pain [Unknown]
  - Injection site haemorrhage [Unknown]
  - Influenza like illness [Unknown]
  - Dyspnoea [Unknown]
  - Depression [Not Recovered/Not Resolved]
  - Tension headache [Unknown]
  - Gravitational oedema [Unknown]
  - Chest pain [Unknown]
  - Joint swelling [Unknown]
  - Blood cholesterol increased [Unknown]

NARRATIVE: CASE EVENT DATE: 2011
